FAERS Safety Report 7241824-5 (Version None)
Quarter: 2011Q1

REPORT INFORMATION
  Report Type: 
  Country: None (occurrence: None)
  Receive Date: 20110124
  Receipt Date: 20110111
  Transmission Date: 20110831
  Serious: Yes (Other)
  Sender: FDA-Public Use
  Company Number: AT-CUBIST-2011S1000032

PATIENT
  Age: 67 Year
  Sex: Male
  Weight: 86 kg

DRUGS (3)
  1. PIPERACILLIN AND TAZOBACTAM [Concomitant]
     Route: 042
  2. CUBICIN [Suspect]
     Indication: INFECTION
  3. MEROPENEM [Concomitant]
     Indication: PROPHYLAXIS
     Route: 042

REACTIONS (1)
  - NEUTROPENIA [None]
